FAERS Safety Report 7349193-7 (Version None)
Quarter: 2011Q1

REPORT INFORMATION
  Report Type: 
  Country: None (occurrence: None)
  Receive Date: 20110303
  Receipt Date: 20110224
  Transmission Date: 20110831
  Serious: Yes (Hospitalization)
  Sender: FDA-Public Use
  Company Number: 2011MA001739

PATIENT
  Age: 58 Year
  Sex: Female

DRUGS (1)
  1. LORAZEPAM TABLETS USP, 0.5 MG (PUREPAC) [Suspect]
     Dosage: 0.5 MG;BID;PO
     Route: 048
     Dates: start: 20110221

REACTIONS (2)
  - DELUSION [None]
  - PSYCHOTIC DISORDER [None]
